FAERS Safety Report 24420875 (Version 2)
Quarter: 2024Q4

REPORT INFORMATION
  Report Type: Spontaneous
  Country: CN (occurrence: CN)
  Receive Date: 20241010
  Receipt Date: 20241018
  Transmission Date: 20250114
  Serious: No
  Sender: ROCHE
  Company Number: CN-BoehringerIngelheim-2024-BI-029795

PATIENT
  Age: 52 Year
  Sex: Male
  Weight: 66.0 kg

DRUGS (3)
  1. ALTEPLASE [Suspect]
     Active Substance: ALTEPLASE
     Indication: Cerebral infarction
     Route: 042
     Dates: start: 20240508, end: 20240508
  2. TIROFIBAN HYDROCHLORIDE [Suspect]
     Active Substance: TIROFIBAN HYDROCHLORIDE
     Indication: Cerebral infarction
     Route: 042
     Dates: start: 20240508, end: 20240509
  3. CALCIUM CHLORIDE\POTASSIUM CHLORIDE\SODIUM CHLORIDE\SODIUM LACTATE [Concomitant]
     Active Substance: CALCIUM CHLORIDE\POTASSIUM CHLORIDE\SODIUM CHLORIDE\SODIUM LACTATE
     Indication: Drug therapy
     Route: 042
     Dates: start: 20240508, end: 20240508

REACTIONS (1)
  - Gingival bleeding [Recovering/Resolving]

NARRATIVE: CASE EVENT DATE: 20240508
